FAERS Safety Report 8563767-7 (Version None)
Quarter: 2012Q3

REPORT INFORMATION
  Report Type: 
  Country: None (occurrence: None)
  Receive Date: 20120803
  Receipt Date: 20120723
  Transmission Date: 20120928
  Serious: Yes (Death)
  Sender: FDA-Public Use
  Company Number: FR-BRISTOL-MYERS SQUIBB COMPANY-16812463

PATIENT
  Age: 55 Year
  Sex: Female

DRUGS (7)
  1. LEVOTHYROXINE SODIUM [Suspect]
     Indication: POST PROCEDURAL HYPOTHYROIDISM
     Dosage: 1 DF: 150 MCG TABLET
     Route: 048
     Dates: end: 20120310
  2. NEBIVOLOL [Suspect]
     Indication: HYPERTENSION
     Dosage: 1 DF: 5MG TABLET
     Route: 048
     Dates: end: 20120310
  3. DIAMICRON [Suspect]
     Indication: TYPE 2 DIABETES MELLITUS
     Route: 048
     Dates: end: 20120310
  4. NEXIUM [Suspect]
     Indication: HYPERCHLORHYDRIA
     Route: 048
     Dates: end: 20120310
  5. INDAPAMIDE [Suspect]
     Indication: HYPERTENSION
     Route: 048
     Dates: end: 20120310
  6. METFORMIN HCL [Suspect]
     Indication: TYPE 2 DIABETES MELLITUS
     Dosage: 1 DF: 1000MG
     Route: 048
     Dates: end: 20120310
  7. ASPIRIN [Suspect]
     Indication: MYOCARDIAL ISCHAEMIA
     Dosage: 1 DF:75 MG POWDER FOR ORAL SOLN
     Route: 048
     Dates: end: 20120310

REACTIONS (1)
  - CEREBRAL HAEMORRHAGE [None]
